FAERS Safety Report 5203786-1 (Version None)
Quarter: 2007Q1

REPORT INFORMATION
  Report Type: 
  Country: None (occurrence: None)
  Receive Date: 20070109
  Receipt Date: 20070109
  Transmission Date: 20070707
  Serious: Yes (Hospitalization)
  Sender: FDA-Public Use
  Company Number: None

PATIENT
  Age: 56 Year
  Sex: Male
  Weight: 85.7 kg

DRUGS (1)
  1. LISINOPRIL [Suspect]

REACTIONS (1)
  - RENAL FAILURE [None]
